FAERS Safety Report 9849940 (Version 3)
Quarter: 2014Q1

REPORT INFORMATION
  Report Type: Spontaneous
  Country: US (occurrence: None)
  Receive Date: 20131224
  Receipt Date: 20140326
  Transmission Date: 20141002
  Serious: Yes (Hospitalization, Other)
  Sender: FDA-Public Use
  Company Number: 20130128

PATIENT
  Age: 17 Year
  Sex: Male
  Weight: 49.9 kg

DRUGS (3)
  1. VENOFER (IRON SUCROSE INJECTION, USP) (2340-10) 20 MG/ML [Suspect]
     Indication: ANAEMIA
     Dosage: 7.5 ML IN 100 ML OF NS IN 1 HR INTRAVENOUS
     Route: 042
     Dates: start: 20121220, end: 20130806
  2. VENOFER (IRON SUCROSE INJECTION, USP) (2340-10) 20 MG/ML [Suspect]
     Indication: BLOOD IRON DECREASED
     Dosage: 7.5 ML IN 100 ML OF NS IN 1 HR INTRAVENOUS
     Route: 042
     Dates: start: 20121220, end: 20130806
  3. VENOFER (IRON SUCROSE INJECTION, USP) (2340-10) 20 MG/ML [Suspect]
     Indication: INFLAMMATION
     Dosage: 7.5 ML IN 100 ML OF NS IN 1 HR INTRAVENOUS
     Route: 042
     Dates: start: 20121220, end: 20130806

REACTIONS (22)
  - Fatigue [None]
  - Decreased appetite [None]
  - Dry skin [None]
  - General physical condition abnormal [None]
  - Haematochezia [None]
  - Vomiting [None]
  - Decreased appetite [None]
  - Chromaturia [None]
  - Off label use [None]
  - Somnolence [None]
  - Oropharyngeal pain [None]
  - Headache [None]
  - Dizziness [None]
  - Weight decreased [None]
  - Nasal congestion [None]
  - Drug ineffective [None]
  - Clostridium difficile infection [None]
  - Immune system disorder [None]
  - Abnormal faeces [None]
  - Crohn^s disease [None]
  - Iron overload [None]
  - Pyrexia [None]
